FAERS Safety Report 7205353-7 (Version None)
Quarter: 2010Q4

REPORT INFORMATION
  Report Type: 
  Country: None (occurrence: None)
  Receive Date: 20101231
  Receipt Date: 20101228
  Transmission Date: 20110411
  Serious: No
  Sender: FDA-Public Use
  Company Number: US-PFIZER INC-2010180821

PATIENT
  Sex: Female

DRUGS (1)
  1. TIKOSYN [Suspect]
     Dosage: 500 UG, 2X/DAY

REACTIONS (4)
  - DEHYDRATION [None]
  - DEPRESSION [None]
  - HEART RATE INCREASED [None]
  - HYPERHIDROSIS [None]
